FAERS Safety Report 11786942 (Version 1)
Quarter: 2015Q4

REPORT INFORMATION
  Report Type: Spontaneous
  Country: US (occurrence: US)
  Receive Date: 20151130
  Receipt Date: 20151130
  Transmission Date: 20160305
  Serious: No
  Sender: FDA-Public Use
  Company Number: US-BAYER-2015-471444

PATIENT
  Age: 75 Year
  Sex: Female
  Weight: 59.41 kg

DRUGS (1)
  1. ALEVE PM [Suspect]
     Active Substance: DIPHENHYDRAMINE HYDROCHLORIDE\NAPROXEN SODIUM
     Indication: SLEEP DISORDER THERAPY
     Dosage: UNK DF, PRN
     Route: 048
     Dates: start: 201506

REACTIONS (1)
  - Product use issue [None]

NARRATIVE: CASE EVENT DATE: 201506
